FAERS Safety Report 10906586 (Version 1)
Quarter: 2015Q1

REPORT INFORMATION
  Report Type: Spontaneous
  Country: FR (occurrence: FR)
  Receive Date: 20150312
  Receipt Date: 20150312
  Transmission Date: 20150721
  Serious: Yes (Hospitalization, Disabling)
  Sender: FDA-Public Use
  Company Number: FR-ROCHE-1550611

PATIENT
  Age: 45 Year
  Sex: Female

DRUGS (4)
  1. HERCEPTIN [Suspect]
     Active Substance: TRASTUZUMAB
     Indication: BREAST CANCER
     Dosage: DATES ON 24/DEC/2014, ON 14/JAN/2015 AND ON 04/FEB/2015; ON DAY 1 AND REINTRODUCTION ON DAY 21
     Route: 042
     Dates: start: 20141224, end: 20150218
  2. ENDOXAN [Suspect]
     Active Substance: CYCLOPHOSPHAMIDE
     Indication: BREAST CANCER
     Dosage: INITIALLY, 3 CYCLES OF EPIRUBICIN, ENDOXAN ON 21/OCT/2014, ON 12/NOV/2014 AND ON 03/DEC/2014
     Route: 065
     Dates: start: 20141224, end: 20150218
  3. EPIRUBICIN [Concomitant]
     Active Substance: EPIRUBICIN
     Dosage: INITIALLY, 3 CYCLES OF EPIRUBICIN, ENDOXAN ON 21/OCT/2014, ON 12/NOV/2014 AND ON 03/DEC/2014
     Route: 065
  4. TAXOL [Suspect]
     Active Substance: PACLITAXEL
     Indication: BREAST CANCER
     Dosage: DATES ON 24/DEC/2014, ON 14/JAN/2015 AND ON 04/FEB/2015; ON DAY 1, 8, 15 AND REINTRODUCTION ON DAY 2
     Route: 042
     Dates: start: 20141224, end: 20150218

REACTIONS (1)
  - Lung disorder [Not Recovered/Not Resolved]

NARRATIVE: CASE EVENT DATE: 20150218
